FAERS Safety Report 22216339 (Version 5)
Quarter: 2023Q2

REPORT INFORMATION
  Report Type: Spontaneous
  Country: PT (occurrence: None)
  Receive Date: 20230417
  Receipt Date: 20230508
  Transmission Date: 20230721
  Serious: Yes (Other)
  Sender: FDA-Public Use
  Company Number: PT-ROCHE-3329125

PATIENT
  Age: 75 Year
  Sex: Female
  Weight: 69 kg

DRUGS (8)
  1. RITUXIMAB [Suspect]
     Active Substance: RITUXIMAB
     Indication: Product used for unknown indication
     Dosage: 1ST CYCLE: 2009 TO 2010 , 2ND CYCLE: APR/2013 TO MAY/2013, 3RD SYSTEM START DATE : JUL/2016 TO AUG/2
     Route: 065
     Dates: start: 20130401, end: 20130501
  2. CYCLOPHOSPHAMIDE [Suspect]
     Active Substance: CYCLOPHOSPHAMIDE
     Indication: Product used for unknown indication
     Dosage: 1ST CYCLE: 2009 TO 2010 , 2ND CYCLE: APR/2013 TO MAY/2013, 3RD SYSTEM START DATE : JUL/2016 TO AUG/2
     Route: 065
  3. DOXORUBICIN [Suspect]
     Active Substance: DOXORUBICIN
     Indication: Product used for unknown indication
     Dosage: 1ST CYCLE: 2009 TO 2010 , 2ND CYCLE: APR/2013 TO MAY/2013, 3RD SYSTEM START DATE : JUL/2016 TO AUG/2
     Route: 065
  4. PREDNISONE [Suspect]
     Active Substance: PREDNISONE
     Indication: Product used for unknown indication
     Dosage: 1ST CYCLE: 2009 TO 2010 , 2ND CYCLE: APR/2013 TO MAY/2013, 3RD SYSTEM START DATE : JUL/2016 TO AUG/2
     Route: 065
  5. VINCRISTINE [Suspect]
     Active Substance: VINCRISTINE
     Indication: Product used for unknown indication
     Dosage: 1ST CYCLE: 2009 TO 2010 , 2ND CYCLE: APR/2013 TO MAY/2013, 3RD SYSTEM START DATE : JUL/2016 TO AUG/2
     Route: 065
  6. BENDAMUSTINE [Suspect]
     Active Substance: BENDAMUSTINE
     Indication: Product used for unknown indication
     Dosage: 1ST CYCLE: 2009 TO 2010 , 2ND CYCLE: APR/2013 TO MAY/2013, 3RD SYSTEM START DATE : JUL/2016 TO AUG/2
     Route: 065
     Dates: start: 201906, end: 201910
  7. GEMCITABINE [Suspect]
     Active Substance: GEMCITABINE
     Indication: Product used for unknown indication
     Dosage: 1ST CYCLE: 2009 TO 2010 , 2ND CYCLE: APR/2013 TO MAY/2013, 3RD SYSTEM START DATE : JUL/2016 TO AUG/2
     Route: 065
  8. OXALIPLATIN [Suspect]
     Active Substance: OXALIPLATIN
     Indication: Product used for unknown indication
     Dosage: 1ST CYCLE: 2009 TO 2010 , 2ND CYCLE: APR/2013 TO MAY/2013, 3RD SYSTEM START DATE : JUL/2016 TO AUG/2
     Route: 065
     Dates: start: 20221101, end: 20230220

REACTIONS (5)
  - Lymphoma [Unknown]
  - Neoplasm malignant [Unknown]
  - Splenic marginal zone lymphoma [Unknown]
  - Ill-defined disorder [Unknown]
  - Impaired work ability [Unknown]
